APPROVED DRUG PRODUCT: REZIPRES
Active Ingredient: EPHEDRINE HYDROCHLORIDE
Strength: 47MG/10ML (4.7MG/ML)
Dosage Form/Route: SOLUTION;INTRAVENOUS
Application: N213536 | Product #004
Applicant: DR REDDYS LABORATORIES SA
Approved: Dec 7, 2023 | RLD: Yes | RS: No | Type: DISCN